FAERS Safety Report 18087385 (Version 1)
Quarter: 2020Q3

REPORT INFORMATION
  Report Type: Spontaneous
  Country: US (occurrence: US)
  Receive Date: 20200729
  Receipt Date: 20200729
  Transmission Date: 20201103
  Serious: No
  Sender: FDA-Public Use
  Company Number: US-BAUSCH-BL-2020-020473

PATIENT
  Sex: Female

DRUGS (2)
  1. WELLBUTRIN XL [Suspect]
     Active Substance: BUPROPION HYDROCHLORIDE
     Indication: PRODUCT USED FOR UNKNOWN INDICATION
     Route: 065
     Dates: start: 202005, end: 2020
  2. WELLBUTRIN XL [Suspect]
     Active Substance: BUPROPION HYDROCHLORIDE
     Dosage: INCREASED
     Route: 065
     Dates: start: 2020

REACTIONS (9)
  - Hypoaesthesia [Unknown]
  - Vision blurred [Unknown]
  - Dyskinesia [Unknown]
  - Bruxism [Unknown]
  - Hunger [Unknown]
  - Insomnia [Recovered/Resolved]
  - Tremor [Unknown]
  - Mydriasis [Unknown]
  - Eating disorder [Unknown]

NARRATIVE: CASE EVENT DATE: 2020
